FAERS Safety Report 21575559 (Version 1)
Quarter: 2022Q4

REPORT INFORMATION
  Report Type: Spontaneous
  Country: DK (occurrence: DK)
  Receive Date: 20221110
  Receipt Date: 20221110
  Transmission Date: 20230113
  Serious: No
  Sender: FDA-Public Use
  Company Number: None

PATIENT
  Age: 14 Year
  Sex: Male
  Weight: 60 kg

DRUGS (1)
  1. ISOTRETINOIN [Suspect]
     Active Substance: ISOTRETINOIN
     Indication: Acne
     Dosage: STRENGTH: 20 MG, UNIT DOSE: 40 MG, FREQUENCY TIME-1 DAY, DURATION-7 DAYS
     Dates: start: 20210507, end: 20210514

REACTIONS (5)
  - Abdominal pain [Not Recovered/Not Resolved]
  - Solar dermatitis [Recovered/Resolved]
  - Eating disorder [Not Recovered/Not Resolved]
  - Nausea [Not Recovered/Not Resolved]
  - Dizziness [Not Recovered/Not Resolved]

NARRATIVE: CASE EVENT DATE: 20210501
